FAERS Safety Report 4808802-4 (Version None)
Quarter: 2005Q4

REPORT INFORMATION
  Report Type: 
  Country: None (occurrence: None)
  Receive Date: 20051025
  Receipt Date: 20050927
  Transmission Date: 20060501
  Serious: Yes (Other)
  Sender: FDA-Public Use
  Company Number: PHBS2005GR14207

PATIENT
  Age: 69 Year
  Sex: Male
  Weight: 69 kg

DRUGS (1)
  1. ZOMETA [Suspect]
     Indication: PROSTATE CANCER

REACTIONS (5)
  - HAEMORRHAGE [None]
  - JAW DISORDER [None]
  - NEOPLASM PROGRESSION [None]
  - OSTEONECROSIS [None]
  - TOOTH EXTRACTION [None]
